FAERS Safety Report 4781547-5 (Version None)
Quarter: 2005Q3

REPORT INFORMATION
  Report Type: 
  Country: None (occurrence: None)
  Receive Date: 20050928
  Receipt Date: 20050812
  Transmission Date: 20060218
  Serious: Yes (Disabling)
  Sender: FDA-Public Use
  Company Number: FR-ROCHE-413954

PATIENT
  Age: 3 Year
  Sex: Female
  Weight: 3.9 kg

DRUGS (2)
  1. ROCEPHIN [Suspect]
     Dosage: DRUG WAS ADMINISTERED AT AGE OF TWO DAYS.
     Route: 042
     Dates: start: 19960222, end: 19960227
  2. AMIKLIN [Suspect]
     Indication: ENTEROBACTER INFECTION
     Dosage: DRUG WAS ADMINISTERED AT AGE OF TWO DAYS.
     Route: 042
     Dates: start: 19960222, end: 19960227

REACTIONS (2)
  - DEAFNESS [None]
  - DEAFNESS NEUROSENSORY [None]
